FAERS Safety Report 4394051-3 (Version None)
Quarter: 2004Q3

REPORT INFORMATION
  Report Type: 
  Country: None (occurrence: None)
  Receive Date: 20040708
  Receipt Date: 20040702
  Transmission Date: 20050211
  Serious: Yes (Hospitalization)
  Sender: FDA-Public Use
  Company Number: 04-06-0807

PATIENT
  Age: 56 Year
  Sex: Female

DRUGS (2)
  1. CLOZAPINE [Suspect]
     Indication: SCHIZOPHRENIA, PARANOID TYPE
     Dosage: 400-325MG QD ORAL
     Route: 048
     Dates: start: 20010201
  2. INSULIN [Concomitant]

REACTIONS (3)
  - FALL [None]
  - HYPOGLYCAEMIA [None]
  - IMPAIRED SELF-CARE [None]
